FAERS Safety Report 4666484-9 (Version None)
Quarter: 2005Q2

REPORT INFORMATION
  Report Type: 
  Country: None (occurrence: None)
  Receive Date: 20050518
  Receipt Date: 20041006
  Transmission Date: 20051028
  Serious: No
  Sender: FDA-Public Use
  Company Number: 2004239169US

PATIENT
  Age: 34 Year
  Sex: Female

DRUGS (3)
  1. PROVERA [Suspect]
     Indication: ENDOMETRIAL DISORDER
     Dosage: 10 MG, QD, ORAL
     Route: 048
  2. MEGACE [Suspect]
     Indication: ENDOMETRIAL DISORDER
     Dosage: 80 MG, TID, ORAL
     Route: 048
  3. HYDROCHLOROTHIAZIDE [Concomitant]

REACTIONS (2)
  - BLOOD GLUCOSE INCREASED [None]
  - MICTURITION URGENCY [None]
